FAERS Safety Report 13464152 (Version 1)
Quarter: 2017Q2

REPORT INFORMATION
  Report Type: Spontaneous
  Country: US (occurrence: US)
  Receive Date: 20170420
  Receipt Date: 20170420
  Transmission Date: 20170830
  Serious: Yes (Other)
  Sender: FDA-Public Use
  Company Number: US-ROCHE-722571

PATIENT
  Age: 18 Year
  Sex: Male
  Weight: 77.1 kg

DRUGS (3)
  1. ACETAMINOPHEN W CAFFEINE [Concomitant]
     Route: 065
  2. ACCUTANE [Suspect]
     Active Substance: ISOTRETINOIN
     Indication: ACNE
     Route: 065
     Dates: start: 2000, end: 2004
  3. TYLENOL [Concomitant]
     Active Substance: ACETAMINOPHEN
     Route: 065

REACTIONS (4)
  - Colitis ulcerative [Unknown]
  - Abdominal pain [Unknown]
  - Nausea [Unknown]
  - Rectal haemorrhage [Unknown]

NARRATIVE: CASE EVENT DATE: 200405
